FAERS Safety Report 10252932 (Version 1)
Quarter: 2014Q2

REPORT INFORMATION
  Report Type: Spontaneous
  Country: US (occurrence: None)
  Receive Date: 20140618
  Receipt Date: 20140618
  Transmission Date: 20141212
  Serious: Yes (Other)
  Sender: FDA-Public Use
  Company Number: None

PATIENT
  Age: 55 Year
  Sex: Female
  Weight: 65.77 kg

DRUGS (4)
  1. GEODON 40 MG PFIZER [Suspect]
     Indication: MENTAL DISORDER
     Route: 048
     Dates: start: 201106
  2. CITALOPRAM [Concomitant]
  3. CLONAZEPAM [Concomitant]
  4. GEODON [Concomitant]

REACTIONS (3)
  - Tremor [None]
  - Weight decreased [None]
  - Ageusia [None]
